FAERS Safety Report 5728913-9 (Version None)
Quarter: 2008Q2

REPORT INFORMATION
  Report Type: 
  Country: None (occurrence: None)
  Receive Date: 20080430
  Receipt Date: 20080223
  Transmission Date: 20081010
  Serious: No
  Sender: FDA-Public Use
  Company Number: 2008PV034351

PATIENT
  Age: 73 Year
  Sex: Female

DRUGS (2)
  1. SYMLIN [Suspect]
     Indication: TYPE 2 DIABETES MELLITUS
     Dosage: 120 MCG;SC
     Route: 058
     Dates: start: 20060101, end: 20070101
  2. INSULIN SUSPENSION [Concomitant]

REACTIONS (1)
  - DIARRHOEA [None]
